FAERS Safety Report 16569968 (Version 2)
Quarter: 2019Q4

REPORT INFORMATION
  Report Type: Report from Study
  Country: IT (occurrence: IT)
  Receive Date: 20190715
  Receipt Date: 20191105
  Transmission Date: 20200122
  Serious: Yes (Hospitalization)
  Sender: FDA-Public Use
  Company Number: IT-TEVA-2019-IT-1077015

PATIENT
  Age: 82 Year

DRUGS (2)
  1. KETOPROFEN LYSINE [Suspect]
     Active Substance: KETOPROFEN LYSINE
     Route: 048
     Dates: start: 20190422
  2. CETIRIZINE [Concomitant]
     Active Substance: CETIRIZINE HYDROCHLORIDE

REACTIONS (3)
  - Swollen tongue [Recovering/Resolving]
  - Tongue pruritus [Recovering/Resolving]
  - Erythema [Recovering/Resolving]

NARRATIVE: CASE EVENT DATE: 20190422
